FAERS Safety Report 9016432 (Version 1)
Quarter: 2013Q1

REPORT INFORMATION
  Report Type: Spontaneous
  Country: FR (occurrence: FR)
  Receive Date: 20130116
  Receipt Date: 20130116
  Transmission Date: 20140127
  Serious: Yes (Congenital Anomaly)
  Sender: FDA-Public Use
  Company Number: FR-GLAXOSMITHKLINE-B0856812B

PATIENT
  Sex: 0

DRUGS (1)
  1. LAMICTAL [Suspect]
     Indication: EPILEPSY
     Dosage: 100MG PER DAY
     Route: 064

REACTIONS (8)
  - Limb reduction defect [Unknown]
  - Congenital hair disorder [Unknown]
  - Congenital foot malformation [Unknown]
  - Brachydactyly [Unknown]
  - Congenital hand malformation [Unknown]
  - Dysmorphism [Unknown]
  - Foetal growth restriction [Unknown]
  - Foetal exposure during pregnancy [Unknown]
